FAERS Safety Report 8084280 (Version 3)
Quarter: 2014Q2

REPORT INFORMATION
  Report Type: Spontaneous
  Country: US (occurrence: US)
  Receive Date: 20110810
  Receipt Date: 20140620
  Transmission Date: 20141212
  Serious: Yes (Hospitalization)
  Sender: FDA-Public Use
  Company Number: US-GLAXOSMITHKLINE-A0866614A

PATIENT
  Age: 50 Year
  Sex: Female
  Weight: 129 kg

DRUGS (1)
  1. AVANDIA [Suspect]
     Indication: DIABETES MELLITUS
     Route: 048
     Dates: start: 2005, end: 20071101

REACTIONS (2)
  - Cerebrovascular accident [Not Recovered/Not Resolved]
  - Lacunar infarction [Unknown]
